FAERS Safety Report 24984193 (Version 1)
Quarter: 2025Q1

REPORT INFORMATION
  Report Type: Other
  Country: JP (occurrence: JP)
  Receive Date: 20250219
  Receipt Date: 20250219
  Transmission Date: 20250408
  Serious: Yes (Hospitalization)
  Sender: ANI
  Company Number: JP-ANIPHARMA-015472

PATIENT
  Age: 48 Year
  Sex: Male

DRUGS (9)
  1. VALPROIC ACID [Suspect]
     Active Substance: VALPROIC ACID
     Indication: Epilepsy
  2. RISPERIDONE [Suspect]
     Active Substance: RISPERIDONE
     Indication: Epileptic psychosis
  3. PALIPERIDONE [Suspect]
     Active Substance: PALIPERIDONE
     Indication: Epileptic psychosis
     Route: 048
  4. EMPAGLIFLOZIN [Concomitant]
     Active Substance: EMPAGLIFLOZIN
     Indication: Diabetes mellitus
  5. BREXPIPRAZOLE [Concomitant]
     Active Substance: BREXPIPRAZOLE
     Indication: Product used for unknown indication
  6. PALIPERIDONE [Suspect]
     Active Substance: PALIPERIDONE
     Indication: Epileptic psychosis
     Route: 048
  7. RISPERIDONE [Suspect]
     Active Substance: RISPERIDONE
     Indication: Epileptic psychosis
  8. RISPERIDONE [Suspect]
     Active Substance: RISPERIDONE
     Indication: Epileptic psychosis
  9. RISPERIDONE [Suspect]
     Active Substance: RISPERIDONE
     Indication: Epileptic psychosis

REACTIONS (2)
  - Extrapyramidal disorder [Recovered/Resolved]
  - Drug interaction [Unknown]
